FAERS Safety Report 7708407-1 (Version None)
Quarter: 2011Q3

REPORT INFORMATION
  Report Type: 
  Country: None (occurrence: None)
  Receive Date: 20110825
  Receipt Date: 20110815
  Transmission Date: 20111222
  Serious: Yes (Hospitalization)
  Sender: FDA-Public Use
  Company Number: US-ELI_LILLY_AND_COMPANY-US201108004896

PATIENT
  Age: 57 Year
  Sex: Female
  Weight: 47.619 kg

DRUGS (1)
  1. CYMBALTA [Suspect]
     Indication: PANIC ATTACK

REACTIONS (2)
  - HERNIA REPAIR [None]
  - HYPERTENSION [None]
